FAERS Safety Report 10302701 (Version 1)
Quarter: 2014Q3

REPORT INFORMATION
  Report Type: Spontaneous
  Country: US (occurrence: None)
  Receive Date: 20140708
  Receipt Date: 20140708
  Transmission Date: 20150326
  Serious: Yes (Hospitalization)
  Sender: FDA-Public Use
  Company Number: AUR-APL-2014-06207

PATIENT
  Age: 50 Year
  Sex: Female

DRUGS (2)
  1. PENICILLIN V POTASSIUM. [Suspect]
     Active Substance: PENICILLIN V POTASSIUM
     Indication: PRODUCT USED FOR UNKNOWN INDICATION
  2. ENBREL [Suspect]
     Active Substance: ETANERCEPT
     Indication: RHEUMATOID ARTHRITIS
     Dates: start: 20121021, end: 201402

REACTIONS (7)
  - Headache [None]
  - Skin exfoliation [None]
  - Fungal skin infection [None]
  - Arthralgia [None]
  - Gait disturbance [None]
  - Pyrexia [None]
  - Drug hypersensitivity [None]

NARRATIVE: CASE EVENT DATE: 201402
